FAERS Safety Report 10264118 (Version 1)
Quarter: 2014Q2

REPORT INFORMATION
  Report Type: Spontaneous
  Country: FR (occurrence: FR)
  Receive Date: 20140627
  Receipt Date: 20140627
  Transmission Date: 20141212
  Serious: Yes (Hospitalization, Other)
  Sender: FDA-Public Use
  Company Number: FR-009507513-1406FRA010877

PATIENT
  Age: 74 Year
  Sex: Female

DRUGS (2)
  1. FOSAVANCE [Suspect]
     Dosage: UNK
     Route: 048
  2. FOSAVANCE [Suspect]
     Dosage: UNK
     Route: 048
     Dates: start: 2012

REACTIONS (3)
  - Sigmoidectomy [Unknown]
  - Cholecystectomy [Unknown]
  - Intestinal resection [Unknown]
